FAERS Safety Report 9521624 (Version 1)
Quarter: 2013Q1

REPORT INFORMATION
  Report Type: Spontaneous
  Country: US (occurrence: None)
  Receive Date: 20130305
  Receipt Date: 20130305
  Transmission Date: 20140127
  Serious: Yes (Other)
  Sender: FDA-Public Use
  Company Number: 163-21880-12072190

PATIENT
  Age: 82 Year
  Sex: Male
  Weight: 92.53 kg

DRUGS (8)
  1. REVLIMID (LENALIDOMIDE) (CAPSULES) [Suspect]
     Indication: MYELODYSPLASTIC SYNDROME
     Dosage: 5 MG. 1 IN 1 D, PO
     Route: 048
     Dates: start: 20120507
  2. ALLEGRA (FEXOFENADINE HYDROCHLORIDE) (UNKNOWN) [Concomitant]
  3. COZAAR (LOSARTAN POTASSIUM) (UNKNOWN) [Concomitant]
  4. FOLIC ACID (FOLIC ACID) (UNKNOWN) [Concomitant]
  5. LIPITOR (ATORVASTATIN) (UNKNOWN) [Concomitant]
  6. VALTREX (VALACICLOVIR HYDROCHLORIDE) (UNKNOWN) [Concomitant]
  7. VITAMIN B12 (CYANOCOBALAMIN) (UNKNOWN) [Concomitant]
  8. VITAMIN D (ERGOCALCIFEROL) (UNKNOWN) [Concomitant]

REACTIONS (1)
  - Haemoglobin decreased [None]
